FAERS Safety Report 7032098-9 (Version None)
Quarter: 2010Q4

REPORT INFORMATION
  Report Type: 
  Country: None (occurrence: None)
  Receive Date: 20101007
  Receipt Date: 20100929
  Transmission Date: 20110411
  Serious: Yes (Disabling)
  Sender: FDA-Public Use
  Company Number: GB-WYE-G06749810

PATIENT
  Age: 62 Year

DRUGS (5)
  1. EFFEXOR XR [Suspect]
     Indication: PRODUCT USED FOR UNKNOWN INDICATION
     Route: 048
     Dates: start: 20100201
  2. ZOPICLONE [Concomitant]
     Route: 048
  3. LITHIUM CARBONATE [Concomitant]
     Route: 048
  4. ZYPREXA [Interacting]
     Indication: PRODUCT USED FOR UNKNOWN INDICATION
     Route: 048
  5. LEVOTHYROXINE SODIUM [Concomitant]
     Route: 048

REACTIONS (2)
  - DRUG INTERACTION [None]
  - PARAESTHESIA [None]
